FAERS Safety Report 17880377 (Version 1)
Quarter: 2020Q2

REPORT INFORMATION
  Report Type: Spontaneous
  Country: US (occurrence: US)
  Receive Date: 20200610
  Receipt Date: 20200610
  Transmission Date: 20200714
  Serious: No
  Sender: FDA-Public Use
  Company Number: US-GLAXOSMITHKLINE-US2020092557

PATIENT
  Age: 54 Year
  Sex: Female

DRUGS (1)
  1. FLONASE SENSIMIST ALLERGY RELIEF [Suspect]
     Active Substance: FLUTICASONE FUROATE
     Indication: HYPERSENSITIVITY
     Dosage: UNK
     Dates: start: 20200527, end: 20200601

REACTIONS (7)
  - Vertigo [Unknown]
  - Dizziness [Unknown]
  - Malaise [Unknown]
  - Impaired driving ability [Unknown]
  - Feeling jittery [Unknown]
  - Motion sickness [Unknown]
  - Chest discomfort [Unknown]

NARRATIVE: CASE EVENT DATE: 20200531
